FAERS Safety Report 5613351-X (Version None)
Quarter: 2008Q1

REPORT INFORMATION
  Report Type: 
  Country: None (occurrence: None)
  Receive Date: 20080130
  Receipt Date: 20080120
  Transmission Date: 20080703
  Serious: Yes (Hospitalization, Other)
  Sender: FDA-Public Use
  Company Number: 2008US000079

PATIENT
  Age: 49 Year
  Sex: Female
  Weight: 53 kg

DRUGS (3)
  1. PROGRAF [Suspect]
     Indication: IMMUNOSUPPRESSION
     Dosage: 3 MG, BID; ORAL
     Route: 048
     Dates: start: 20071210, end: 20071225
  2. SULFAMETHOXAZOLE AND TRIMETHOPRIM [Concomitant]
  3. RANITIDINE [Concomitant]

REACTIONS (10)
  - DRUG INEFFECTIVE [None]
  - HEADACHE [None]
  - MENTAL RETARDATION [None]
  - MOVEMENT DISORDER [None]
  - NECK PAIN [None]
  - PSYCHIATRIC SYMPTOM [None]
  - RENAL NECROSIS [None]
  - SOMNOLENCE [None]
  - THROMBOSIS [None]
  - TREMOR [None]
